FAERS Safety Report 8346389-2 (Version None)
Quarter: 2012Q2

REPORT INFORMATION
  Report Type: 
  Country: None (occurrence: None)
  Receive Date: 20120507
  Receipt Date: 20120507
  Transmission Date: 20120825
  Serious: No
  Sender: FDA-Public Use
  Company Number: None

PATIENT
  Age: 73 Year
  Sex: Female

DRUGS (3)
  1. WARFARIN SODIUM [Concomitant]
  2. LEVOTHROID [Concomitant]
  3. REVLIMID [Suspect]
     Indication: CHRONIC LYMPHOCYTIC LEUKAEMIA
     Dosage: REVLIMID 10 MG, DAILY, ORALLY; REVLIMID 10  MG EVERY OTHER DAY ORALLY
     Route: 048
     Dates: start: 20100601

REACTIONS (1)
  - NEUTROPENIA [None]
